FAERS Safety Report 24630852 (Version 3)
Quarter: 2024Q4

REPORT INFORMATION
  Report Type: Spontaneous
  Country: JP (occurrence: JP)
  Receive Date: 20241118
  Receipt Date: 20241226
  Transmission Date: 20250114
  Serious: Yes (Other)
  Sender: ALEXION PHARMACEUTICALS
  Company Number: JP-ASTRAZENECA-240094408_010520_P_1

PATIENT
  Age: 49 Year
  Weight: 50 kg

DRUGS (5)
  1. FASLODEX [Suspect]
     Active Substance: FULVESTRANT
     Indication: Breast cancer
     Dosage: DOSE UNKNOWN
  2. FASLODEX [Suspect]
     Active Substance: FULVESTRANT
  3. TRUQAP [Suspect]
     Active Substance: CAPIVASERTIB
     Indication: Breast cancer
     Dosage: ADMINISTER FOR 4 DAYS IN A ROW FOLLOWED BY A 3-DAY BREAK
  4. TRUQAP [Suspect]
     Active Substance: CAPIVASERTIB
     Dosage: ADMINISTER FOR 4 DAYS IN A ROW FOLLOWED BY A 3-DAY BREAK
  5. CALCIUM CARBONATE\CHOLECALCIFEROL\MAGNESIUM CARBONATE [Suspect]
     Active Substance: CALCIUM CARBONATE\CHOLECALCIFEROL\MAGNESIUM CARBONATE
     Indication: Metastases to bone

REACTIONS (7)
  - Rash erythematous [Not Recovered/Not Resolved]
  - Stomatitis [Recovering/Resolving]
  - Oedema [Recovering/Resolving]
  - Oropharyngeal discomfort [Not Recovered/Not Resolved]
  - Pyrexia [Not Recovered/Not Resolved]
  - Hyperaemia [Not Recovered/Not Resolved]
  - Headache [Unknown]
